FAERS Safety Report 8052740-3 (Version None)
Quarter: 2012Q1

REPORT INFORMATION
  Report Type: 
  Country: None (occurrence: None)
  Receive Date: 20120117
  Receipt Date: 20120117
  Transmission Date: 20120608
  Serious: No
  Sender: FDA-Public Use
  Company Number: None

PATIENT
  Sex: Female
  Weight: 51 kg

DRUGS (2)
  1. TAXOL [Suspect]
     Dosage: 284 MG
     Dates: end: 20111103
  2. CARBOPLATIN [Suspect]
     Dosage: 456 MG
     Dates: end: 20111103

REACTIONS (1)
  - NEUTROPENIA [None]
